FAERS Safety Report 10058708 (Version 1)
Quarter: 2014Q2

REPORT INFORMATION
  Report Type: Spontaneous
  Country: JP (occurrence: None)
  Receive Date: 20140402
  Receipt Date: 20140402
  Transmission Date: 20141212
  Serious: Yes (Hospitalization)
  Sender: FDA-Public Use
  Company Number: FK201401088

PATIENT
  Age: 69 Year
  Sex: Male

DRUGS (3)
  1. CARBOPLATIN (MANUFACTURER UNKNOWN) (CARBOPLATIN) (CARBOPLATIN) [Suspect]
     Indication: NON-SMALL CELL LUNG CANCER
     Dosage: AUC 5
  2. PACLITAXEL  (PACLITAXEL) (PACLITAXEL) [Suspect]
     Indication: NON-SMALL CELL LUNG CANCER
  3. BEVACIZUMAB (BEVACIZUMAB) (BEVACIZUMAB) [Suspect]
     Indication: NON-SMALL CELL LUNG CANCER

REACTIONS (1)
  - Gastrointestinal perforation [None]
